FAERS Safety Report 5133050-0 (Version None)
Quarter: 2006Q4

REPORT INFORMATION
  Report Type: 
  Country: None (occurrence: None)
  Receive Date: 20061017
  Receipt Date: 20061003
  Transmission Date: 20070319
  Serious: Yes (Hospitalization)
  Sender: FDA-Public Use
  Company Number: 14924

PATIENT
  Age: 62 Year
  Sex: Male
  Weight: 62.5 kg

DRUGS (2)
  1. LEUCOVORIN CALCIUM [Suspect]
     Indication: BILIARY NEOPLASM
     Dosage: 25 MG/M2 QD IV
     Route: 042
     Dates: start: 20060821
  2. FLUOROURACIL [Suspect]
     Indication: BILIARY NEOPLASM
     Dosage: 375 MG/M2 QD IV
     Route: 042
     Dates: start: 20060821

REACTIONS (2)
  - DEHYDRATION [None]
  - STOMATITIS [None]
